FAERS Safety Report 6471612-9 (Version None)
Quarter: 2009Q4

REPORT INFORMATION
  Report Type: 
  Country: None (occurrence: None)
  Receive Date: 20091203
  Receipt Date: 20080613
  Transmission Date: 20100525
  Serious: Yes (Other)
  Sender: FDA-Public Use
  Company Number: FR-ELI_LILLY_AND_COMPANY-FR200803004849

PATIENT
  Age: 82 Year
  Sex: Female
  Weight: 70 kg

DRUGS (8)
  1. CYMBALTA [Suspect]
     Indication: DEPRESSION
     Dosage: 60 MG, DAILY (1/D)
     Route: 048
     Dates: start: 20080212, end: 20080317
  2. DEPAMIDE [Concomitant]
     Indication: DEPRESSION
     Dosage: 300 MG, DAILY (1/D)
     Route: 048
     Dates: start: 20060101
  3. LUDIOMIL                                /SCH/ [Concomitant]
     Dosage: 1 D/F, DAILY (1/D)
     Route: 065
  4. LEVOTHYROXINE SODIUM [Concomitant]
     Indication: HYPOTHYROIDISM
     Dosage: UNK, UNKNOWN
     Route: 048
     Dates: start: 20000101
  5. BIPERIDYS [Concomitant]
     Indication: VOMITING
     Dosage: 60 MG, DAILY (1/D)
     Route: 048
     Dates: start: 20070101
  6. PARIET [Concomitant]
     Indication: GASTROOESOPHAGEAL REFLUX DISEASE
     Dosage: 20 MG, DAILY (1/D)
     Route: 048
     Dates: start: 20070101
  7. TEMESTA [Concomitant]
     Indication: DEPRESSION
     Dosage: 2.5 MG, DAILY (1/D)
     Route: 048
     Dates: start: 20070101
  8. SINEMET [Concomitant]
     Indication: PARKINSON'S DISEASE
     Dosage: 25/100, DAILY (1/D)
     Route: 048
     Dates: start: 20060101

REACTIONS (1)
  - HEPATOCELLULAR INJURY [None]
